FAERS Safety Report 20412930 (Version 1)
Quarter: 2022Q1

REPORT INFORMATION
  Report Type: Spontaneous
  Country: DE (occurrence: DE)
  Receive Date: 20220201
  Receipt Date: 20220201
  Transmission Date: 20220423
  Serious: Yes (Life-Threatening, Hospitalization, Other)
  Sender: FDA-Public Use
  Company Number: None

PATIENT
  Age: 73 Year
  Sex: Male
  Weight: 120 kg

DRUGS (1)
  1. ENTRESTO [Suspect]
     Active Substance: SACUBITRIL\VALSARTAN
     Indication: Cardiac failure
     Dosage: ERSTMALIGE EINNAHME
     Route: 048
     Dates: start: 20220121, end: 20220123

REACTIONS (3)
  - Angioedema [Not Recovered/Not Resolved]
  - Dyspnoea [Unknown]
  - Stridor [Unknown]

NARRATIVE: CASE EVENT DATE: 20220101
